FAERS Safety Report 9335975 (Version 1)
Quarter: 2013Q2

REPORT INFORMATION
  Report Type: Spontaneous
  Country: US (occurrence: US)
  Receive Date: 20130606
  Receipt Date: 20130606
  Transmission Date: 20140414
  Serious: Yes (Other)
  Sender: FDA-Public Use
  Company Number: US-US-EMD SERONO, INC.-7165096

PATIENT
  Age: 53 Year
  Sex: Male

DRUGS (2)
  1. REBIF [Suspect]
     Indication: MULTIPLE SCLEROSIS
     Route: 058
     Dates: start: 20081215, end: 2012
  2. REBIF [Suspect]
     Route: 058
     Dates: start: 2012

REACTIONS (3)
  - Cartilage injury [Recovered/Resolved]
  - Fall [Recovered/Resolved]
  - Toothache [Unknown]
